FAERS Safety Report 13803865 (Version 1)
Quarter: 2017Q3

REPORT INFORMATION
  Report Type: Spontaneous
  Country: US (occurrence: US)
  Receive Date: 20170728
  Receipt Date: 20170728
  Transmission Date: 20171127
  Serious: No
  Sender: FDA-Public Use
  Company Number: US-ABBVIE-16P-163-1723333-00

PATIENT
  Age: 66 Year
  Sex: Female
  Weight: 65.83 kg

DRUGS (9)
  1. TIROSINT [Suspect]
     Active Substance: LEVOTHYROXINE SODIUM
     Indication: AUTOIMMUNE THYROIDITIS
     Route: 048
     Dates: start: 20160401, end: 20160610
  2. TIROSINT [Suspect]
     Active Substance: LEVOTHYROXINE SODIUM
     Route: 048
     Dates: start: 20160610
  3. SYNTHROID [Suspect]
     Active Substance: LEVOTHYROXINE SODIUM
     Indication: PRODUCT USED FOR UNKNOWN INDICATION
     Route: 065
  4. SYNTHROID [Suspect]
     Active Substance: LEVOTHYROXINE SODIUM
     Route: 065
  5. SYNTHROID [Suspect]
     Active Substance: LEVOTHYROXINE SODIUM
     Route: 065
     Dates: start: 201508
  6. TIROSINT [Suspect]
     Active Substance: LEVOTHYROXINE SODIUM
     Dosage: 50-52 MCG (TWO 25MCG OR FOUR 13MCG CAPSULES DAILY)
     Route: 048
     Dates: start: 2016
  7. LEVOTHYROXINE. [Suspect]
     Active Substance: LEVOTHYROXINE
     Indication: HYPOTHYROIDISM
     Route: 065
  8. SYNTHROID [Suspect]
     Active Substance: LEVOTHYROXINE SODIUM
     Route: 065
  9. LEVOTHYROXINE. [Suspect]
     Active Substance: LEVOTHYROXINE
     Route: 065
     Dates: start: 201504, end: 201508

REACTIONS (15)
  - Lymphadenopathy [Recovered/Resolved]
  - Psychogenic seizure [Unknown]
  - Headache [Unknown]
  - Migraine with aura [Unknown]
  - Urticaria [Unknown]
  - Contusion [Unknown]
  - Eye pain [Unknown]
  - Ear infection fungal [Unknown]
  - Cystitis [Unknown]
  - Constipation [Unknown]
  - Eye disorder [Unknown]
  - Visual impairment [Unknown]
  - Underdose [Unknown]
  - Palpitations [Unknown]
  - Rhinorrhoea [Unknown]

NARRATIVE: CASE EVENT DATE: 2015
